FAERS Safety Report 4741067-0 (Version None)
Quarter: 2005Q3

REPORT INFORMATION
  Report Type: 
  Country: None (occurrence: None)
  Receive Date: 20050810
  Receipt Date: 20050610
  Transmission Date: 20060218
  Serious: No
  Sender: FDA-Public Use
  Company Number: US-GLAXOSMITHKLINE-A0562477A

PATIENT
  Age: 52 Year
  Sex: Female

DRUGS (6)
  1. PAXIL [Suspect]
     Indication: DEPRESSION
     Dosage: 40MG UNKNOWN
     Route: 048
     Dates: start: 20050413
  2. PAXIL CR [Suspect]
     Indication: DEPRESSION
     Dosage: 50MG UNKNOWN
     Route: 048
     Dates: end: 20050413
  3. TRILEPTAL [Concomitant]
     Dosage: 900MG PER DAY
     Route: 065
  4. EFFEXOR XR [Concomitant]
     Dosage: 75MG PER DAY
     Route: 065
  5. SEROQUEL [Concomitant]
     Dosage: 50MG PER DAY
     Route: 065
  6. KLONOPIN [Concomitant]
     Dosage: 2.5MG PER DAY
     Route: 065

REACTIONS (5)
  - ANXIETY [None]
  - DRUG INEFFECTIVE [None]
  - PAIN [None]
  - PANIC ATTACK [None]
  - PARANOIA [None]
